FAERS Safety Report 16224789 (Version 1)
Quarter: 2019Q2

REPORT INFORMATION
  Report Type: Spontaneous
  Country: TW (occurrence: TW)
  Receive Date: 20190422
  Receipt Date: 20190422
  Transmission Date: 20190711
  Serious: Yes (Other)
  Sender: FDA-Public Use
  Company Number: TW-PFIZER INC-2019165556

PATIENT
  Age: 32 Year
  Sex: Male

DRUGS (3)
  1. AXITINIB [Suspect]
     Active Substance: AXITINIB
     Indication: RENAL CELL CARCINOMA STAGE IV
     Dosage: 7 MG, 2X/DAY (BID)
     Dates: start: 201804
  2. AXITINIB [Suspect]
     Active Substance: AXITINIB
     Dosage: 8 MG, 2X/DAY (BID)
     Dates: start: 201807
  3. AXITINIB [Suspect]
     Active Substance: AXITINIB
     Dosage: 9 MG, 2X/DAY (BID)
     Dates: start: 201810

REACTIONS (2)
  - Dyspnoea [Unknown]
  - Respiratory failure [Unknown]

NARRATIVE: CASE EVENT DATE: 20180909
